FAERS Safety Report 8463392-2 (Version None)
Quarter: 2012Q2

REPORT INFORMATION
  Report Type: 
  Country: None (occurrence: None)
  Receive Date: 20120323
  Receipt Date: 20111207
  Transmission Date: 20120825
  Serious: Yes (Hospitalization)
  Sender: FDA-Public Use
  Company Number: 163-21880-11092750

PATIENT
  Age: 64 Year
  Sex: Male
  Weight: 65.318 kg

DRUGS (26)
  1. GABAPENTIN [Concomitant]
  2. FOLIC ACID [Concomitant]
  3. OMEGA 3 Q OIL (FISH OIL) [Concomitant]
  4. VANCOMYCIN [Concomitant]
  5. PAMIDRONATE DISODIUM [Concomitant]
  6. AREDIA [Concomitant]
  7. VITAMIN D2 (ERGOCALCIFEROL) [Concomitant]
  8. MULTIVITAMIN [Concomitant]
  9. POTASSIUM CHLORIDE [Concomitant]
  10. CEFTRIAXONE [Concomitant]
  11. SERTRALINE HYDROCHLORIDE [Concomitant]
  12. ASCORBIC ACID [Concomitant]
  13. SUPER B COMPLEX (BECOSYM FORTE) [Concomitant]
  14. IBUPROFEN [Concomitant]
  15. CEFTAZIDINE (CEFTAZIDINE) [Concomitant]
  16. REVLIMID [Suspect]
     Indication: MULTIPLE MYELOMA
     Dosage: 25 MG, 1 IN 1 D, PO; 15-20 MG, DAILY, PO; 15 MG, 1 IN 1 D, PO
     Route: 048
     Dates: start: 20100601
  17. REVLIMID [Suspect]
     Indication: MULTIPLE MYELOMA
     Dosage: 25 MG, 1 IN 1 D, PO; 15-20 MG, DAILY, PO; 15 MG, 1 IN 1 D, PO
     Route: 048
     Dates: start: 20090601
  18. REVLIMID [Suspect]
     Indication: MULTIPLE MYELOMA
     Dosage: 25 MG, 1 IN 1 D, PO; 15-20 MG, DAILY, PO; 15 MG, 1 IN 1 D, PO
     Route: 048
     Dates: start: 20080105, end: 20090101
  19. VITAMIN B12 [Concomitant]
  20. ASMANEX TWISTHALER [Concomitant]
  21. LOPERAMIDE [Concomitant]
  22. ACETAMINOPHEN [Concomitant]
  23. LORAZEPAM [Concomitant]
  24. HYDROCODONE BITARTRATE [Concomitant]
  25. ASPIRIN [Concomitant]
  26. AZITHROMYCIN [Concomitant]

REACTIONS (2)
  - PNEUMONIA [None]
  - DIARRHOEA [None]
